FAERS Safety Report 19811789 (Version 26)
Quarter: 2025Q1

REPORT INFORMATION
  Report Type: Report from Study
  Country: US (occurrence: US)
  Receive Date: 20210909
  Receipt Date: 20250214
  Transmission Date: 20250408
  Serious: Yes (Hospitalization, Other)
  Sender: TAKEDA
  Company Number: US-TAKEDA-2021TUS054586

PATIENT
  Age: 78 Year
  Sex: Female
  Weight: 113 kg

DRUGS (44)
  1. HUMAN IMMUNOGLOBULIN G [Suspect]
     Active Substance: HUMAN IMMUNOGLOBULIN G
     Indication: Immunodeficiency common variable
     Dosage: 45 GRAM, Q4WEEKS
     Dates: start: 20210715
  2. HUMAN IMMUNOGLOBULIN G [Suspect]
     Active Substance: HUMAN IMMUNOGLOBULIN G
     Dosage: 45 GRAM, Q4WEEKS
  3. HUMAN IMMUNOGLOBULIN G [Suspect]
     Active Substance: HUMAN IMMUNOGLOBULIN G
     Dosage: 55 GRAM, Q4WEEKS
  4. HUMAN IMMUNOGLOBULIN G [Suspect]
     Active Substance: HUMAN IMMUNOGLOBULIN G
  5. HYDRALAZINE HCL [Concomitant]
     Active Substance: HYDRALAZINE HYDROCHLORIDE
  6. HEPARIN [Concomitant]
     Active Substance: HEPARIN SODIUM
  7. DIPHENHYDRAMINE [Concomitant]
     Active Substance: DIPHENHYDRAMINE
  8. GLIMEPIRIDE [Concomitant]
     Active Substance: GLIMEPIRIDE
  9. SODIUM CHLORIDE [Concomitant]
     Active Substance: SODIUM CHLORIDE
  10. EPINEPHRINE [Concomitant]
     Active Substance: EPINEPHRINE
  11. LEVOTHYROXINE SODIUM [Concomitant]
     Active Substance: LEVOTHYROXINE SODIUM
  12. AMLODIPINE BESYLATE [Concomitant]
     Active Substance: AMLODIPINE BESYLATE
  13. BISOPROLOL FUMARATE [Concomitant]
     Active Substance: BISOPROLOL FUMARATE
  14. ACETAMINOPHEN [Concomitant]
     Active Substance: ACETAMINOPHEN
  15. OLMESARTAN MEDOXOMIL [Concomitant]
     Active Substance: OLMESARTAN MEDOXOMIL
  16. OXYGEN [Concomitant]
     Active Substance: OXYGEN
  17. TORSEMIDE [Concomitant]
     Active Substance: TORSEMIDE
  18. SODIUM CHLORIDE [Concomitant]
     Active Substance: SODIUM CHLORIDE
  19. CYMBALTA [Concomitant]
     Active Substance: DULOXETINE HYDROCHLORIDE
  20. LIPITOR [Concomitant]
     Active Substance: ATORVASTATIN CALCIUM
  21. LIDOCAINE [Concomitant]
     Active Substance: LIDOCAINE
  22. FERROUS SULFATE [Concomitant]
     Active Substance: FERROUS SULFATE
  23. BUDESONIDE [Concomitant]
     Active Substance: BUDESONIDE
  24. VITAMIN D3 [Concomitant]
     Active Substance: CHOLECALCIFEROL
  25. POTASSIUM CHLORIDE [Concomitant]
     Active Substance: POTASSIUM CHLORIDE
  26. OLMESARTAN [Concomitant]
     Active Substance: OLMESARTAN
  27. ELIQUIS [Concomitant]
     Active Substance: APIXABAN
  28. BISOPROLOL [Concomitant]
     Active Substance: BISOPROLOL
  29. HYDROCHLOROTHIAZIDE [Concomitant]
     Active Substance: HYDROCHLOROTHIAZIDE
  30. FUROSEMIDE [Concomitant]
     Active Substance: FUROSEMIDE
  31. ALBUTEROL SULFATE [Concomitant]
     Active Substance: ALBUTEROL SULFATE
  32. TRELEGY ELLIPTA [Concomitant]
     Active Substance: FLUTICASONE FUROATE\UMECLIDINIUM BROMIDE\VILANTEROL TRIFENATATE
  33. XARELTO [Concomitant]
     Active Substance: RIVAROXABAN
  34. BREZTRI [Concomitant]
     Active Substance: BUDESONIDE\FORMOTEROL\GLYCOPYRROLATE
  35. VITAMIN B [Concomitant]
     Active Substance: VITAMIN B
  36. DIPHENHYDRAMINE HYDROCHLORIDE [Concomitant]
     Active Substance: DIPHENHYDRAMINE HYDROCHLORIDE
  37. GABAPENTIN [Concomitant]
     Active Substance: GABAPENTIN
  38. Brompheniramine maleate, pseudoephedrine hcl, dextromethorphan hydrobr [Concomitant]
  39. ATORVASTATIN CALCIUM [Concomitant]
     Active Substance: ATORVASTATIN CALCIUM
  40. OHTUVAYRE [Concomitant]
     Active Substance: ENSIFENTRINE
  41. SPIRONOLACTONE [Concomitant]
     Active Substance: SPIRONOLACTONE
  42. FERROUS SULFATE [Concomitant]
     Active Substance: FERROUS SULFATE
  43. PROMETHAZINE [Concomitant]
     Active Substance: PROMETHAZINE HYDROCHLORIDE
  44. DOXYCYCLINE HYCLATE [Concomitant]
     Active Substance: DOXYCYCLINE HYCLATE

REACTIONS (24)
  - COVID-19 pneumonia [Recovering/Resolving]
  - Pericardial effusion [Unknown]
  - Pericarditis [Unknown]
  - Atrial fibrillation [Recovering/Resolving]
  - Pneumonia [Unknown]
  - Upper limb fracture [Unknown]
  - Poor venous access [Unknown]
  - Peripheral swelling [Unknown]
  - Fall [Recovering/Resolving]
  - Dyspnoea exertional [Unknown]
  - Limb injury [Unknown]
  - Cellulitis [Unknown]
  - COVID-19 [Unknown]
  - Weight increased [Unknown]
  - Fluid retention [Unknown]
  - Incorrect dose administered [Unknown]
  - Contusion [Unknown]
  - Back pain [Recovering/Resolving]
  - Hypertension [Unknown]
  - Dyspnoea [Unknown]
  - Oedema peripheral [Unknown]
  - Arthralgia [Unknown]
  - Headache [Unknown]
  - Fatigue [Unknown]

NARRATIVE: CASE EVENT DATE: 20210820
